FAERS Safety Report 9689193 (Version 2)
Quarter: 2013Q4

REPORT INFORMATION
  Report Type: Report from Study
  Country: US (occurrence: US)
  Receive Date: 20131114
  Receipt Date: 20131114
  Transmission Date: 20140711
  Serious: Yes (Hospitalization)
  Sender: FDA-Public Use
  Company Number: US-ROCHE-1283271

PATIENT
  Age: 63 Year
  Sex: Male
  Weight: 126 kg

DRUGS (12)
  1. BEVACIZUMAB [Suspect]
     Indication: METASTATIC MALIGNANT MELANOMA
     Dosage: OVER 90 MINUTES, MOST RECENT DOSE WAS ADMINISTERED ON 18/SEP/2013; TOTAL DOSE WAS 1257 MG
     Route: 042
     Dates: start: 20130603
  2. PACLITAXEL [Suspect]
     Indication: METASTATIC MALIGNANT MELANOMA
     Dosage: OVER 60 MINUTES
     Route: 042
     Dates: start: 20130603
  3. PACLITAXEL [Suspect]
     Dosage: MOST RECENT DOSE WAS ADMINISTERED ON 18/SEP/2013; TOTAL DOSE WAS 102 MG
     Route: 042
     Dates: start: 20130918
  4. PACLITAXEL [Suspect]
     Dosage: CYCLE 7: DAY 8 ON 03/OCT/2013 AND DAY 15 ON 22/OCT/2013
     Route: 042
     Dates: start: 20131003
  5. CARBOPLATIN [Suspect]
     Indication: METASTATIC MALIGNANT MELANOMA
     Dosage: AUC 5 OVER 30 MINUTES, MOST RECENT DOSE WAS ADMINISTERED ON 18/SEP/2013; TOTAL DOSE WAS 600 MG
     Route: 042
     Dates: start: 20130603
  6. CARBOPLATIN [Suspect]
     Dosage: MOST RECENT DOSE WAS ADMINISTERED ON 18/SEP/2013; TOTAL DOSE WAS 600 MG
     Route: 042
     Dates: start: 20130918
  7. EVEROLIMUS [Suspect]
     Indication: METASTATIC MALIGNANT MELANOMA
     Dosage: MOST RECENT DOSE WAS ADMINISTERED ON 19/SEP/2013
     Route: 048
     Dates: end: 20130603
  8. EVEROLIMUS [Suspect]
     Route: 048
     Dates: start: 20131005
  9. LISINOPRIL [Concomitant]
  10. OMEPRAZOLE [Concomitant]
  11. ONDANSETRON [Concomitant]
  12. TAPENTADOL [Concomitant]

REACTIONS (3)
  - Nausea [Not Recovered/Not Resolved]
  - Vomiting [Not Recovered/Not Resolved]
  - Pancreatitis [Not Recovered/Not Resolved]
